FAERS Safety Report 10087930 (Version 1)
Quarter: 2014Q2

REPORT INFORMATION
  Report Type: Spontaneous
  Country: US (occurrence: US)
  Receive Date: 20140419
  Receipt Date: 20140419
  Transmission Date: 20141212
  Serious: No
  Sender: FDA-Public Use
  Company Number: US-009507513-1403USA011825

PATIENT
  Age: 85 Year
  Sex: Male

DRUGS (2)
  1. NASONEX [Suspect]
     Indication: NASAL CONGESTION
     Dosage: 2 SPRAYS, ONCE DAILY
     Route: 045
     Dates: start: 20140320
  2. NASONEX [Suspect]
     Indication: DYSPNOEA

REACTIONS (3)
  - Drug dose omission [Unknown]
  - Device malfunction [Unknown]
  - Product quality issue [Unknown]
